FAERS Safety Report 9312010 (Version 1)
Quarter: 2013Q2

REPORT INFORMATION
  Report Type: Report from Study
  Country: SG (occurrence: SG)
  Receive Date: 20130528
  Receipt Date: 20130528
  Transmission Date: 20140414
  Serious: Yes (Other)
  Sender: FDA-Public Use
  Company Number: SG-JNJFOC-20130511139

PATIENT
  Sex: Female

DRUGS (8)
  1. DOXORUBICIN HYDROCHLORIDE (CAELYX) [Suspect]
     Indication: BREAST CANCER METASTATIC
     Route: 042
  2. DOXORUBICIN HYDROCHLORIDE (CAELYX) [Suspect]
     Indication: BREAST CANCER METASTATIC
     Route: 042
  3. DOXORUBICIN HYDROCHLORIDE (CAELYX) [Suspect]
     Indication: BREAST CANCER METASTATIC
     Route: 042
  4. DOXORUBICIN HYDROCHLORIDE (CAELYX) [Suspect]
     Indication: BREAST CANCER METASTATIC
     Dosage: 10 ML VIALS; 20 MG OF DOXORUBICIN HYDROCHLORIDE OVER 1 HOUR ON DAY 1 OF A 21-DAY CYCLE
     Route: 042
  5. GEMZAR [Suspect]
     Indication: BREAST CANCER METASTATIC
     Dosage: AS HCL SALT, MANNITOL AND NA-ACETATE, 30 MIN ON DAYS 1 AND 8 OF 21 DAY CYCLE
     Route: 042
  6. GEMZAR [Suspect]
     Indication: BREAST CANCER METASTATIC
     Dosage: AS HCL SALT, MANNITOL AND NA-ACETATE, 30 MIN ON DAYS 1 AND 8 OF 21 DAY CYCLE
     Route: 042
  7. GEMZAR [Suspect]
     Indication: BREAST CANCER METASTATIC
     Dosage: AS HCL SALT, MANNITOL AND NA-ACETATE, 30 MIN ON DAYS 1 AND 8 OF 21 DAY CYCLE
     Route: 042
  8. GEMZAR [Suspect]
     Indication: BREAST CANCER METASTATIC
     Dosage: VIALS OF 200/1000 MG
     Route: 042

REACTIONS (18)
  - Thrombocytopenia [Unknown]
  - Breast cancer metastatic [Unknown]
  - Anaemia [Unknown]
  - Granulocytopenia [Unknown]
  - Febrile neutropenia [Unknown]
  - Pyrexia [Unknown]
  - Infection [Unknown]
  - Fatigue [Unknown]
  - Myalgia [Unknown]
  - Nausea [Unknown]
  - Palmar-plantar erythrodysaesthesia syndrome [Unknown]
  - Vomiting [Unknown]
  - Stomatitis [Unknown]
  - Constipation [Unknown]
  - Mucosal inflammation [Unknown]
  - Rash [Unknown]
  - Diarrhoea [Unknown]
  - Alopecia [Unknown]
